FAERS Safety Report 4473721-2 (Version None)
Quarter: 2004Q4

REPORT INFORMATION
  Report Type: 
  Country: None (occurrence: None)
  Receive Date: 20040909
  Receipt Date: 20040409
  Transmission Date: 20050328
  Serious: Yes (Hospitalization)
  Sender: FDA-Public Use
  Company Number: APP200400385

PATIENT
  Age: 28 Year
  Sex: Female
  Weight: 81.1939 kg

DRUGS (8)
  1. OXYTOCIN [Suspect]
     Indication: LABOUR INDUCTION
     Dosage: 20 UNITS IN INTRAVENOUS FLUIDS AT 0143, INTRAVENOUS; 20 UNITS IN INTRAVENOUS FLUIDS AT 0730, INTRAVE
     Route: 042
     Dates: start: 20040329, end: 20040329
  2. LIDOCAINE 1% (LIDOCAINE) [Concomitant]
  3. TYLENOL W/ CODEINE NO. 3 [Concomitant]
  4. KONDREMUL (MINERAL OIL EMULSION) [Concomitant]
  5. COLACE (DOCUSATE SODIUM) [Concomitant]
  6. SENOKOT [Concomitant]
  7. MYLICON (DIMETICONE, ACTIVATED) [Concomitant]
  8. DARVOCET-N 50 (PROPACET) [Concomitant]

REACTIONS (1)
  - DRUG INEFFECTIVE [None]
